FAERS Safety Report 4301408-5 (Version None)
Quarter: 2004Q1

REPORT INFORMATION
  Report Type: 
  Country: None (occurrence: None)
  Receive Date: 20040219
  Receipt Date: 20040209
  Transmission Date: 20041129
  Serious: Yes (Hospitalization)
  Sender: FDA-Public Use
  Company Number: 03P-034-0241932-00

PATIENT
  Age: 76 Year
  Sex: Female
  Weight: 61 kg

DRUGS (5)
  1. HUMIRA 40 MG/0.8 L PRE-FILLED SYRINGE (HUMIRA) (ADALIMUMAB) (ADALIMUMA [Suspect]
     Indication: RHEUMATOID ARTHRITIS
     Dosage: 40 MG, 1 IN 2WK, SUBCUTANEOUS
     Route: 058
     Dates: start: 20030401, end: 20031001
  2. METHOTREXATE [Concomitant]
  3. PREDNISONE [Concomitant]
  4. PARACETAMOL [Concomitant]
  5. PROPRANOLOL [Concomitant]

REACTIONS (5)
  - ABDOMINAL DISTENSION [None]
  - ASCITES [None]
  - LIVER DISORDER [None]
  - MALAISE [None]
  - PERITONEAL TUBERCULOSIS [None]
